FAERS Safety Report 5526933-0 (Version None)
Quarter: 2007Q4

REPORT INFORMATION
  Report Type: 
  Country: None (occurrence: None)
  Receive Date: 20071127
  Receipt Date: 20071115
  Transmission Date: 20080405
  Serious: Yes (Hospitalization)
  Sender: FDA-Public Use
  Company Number: BE-SANOFI-SYNTHELABO-A01200713206

PATIENT
  Sex: Female

DRUGS (7)
  1. GLYCEROL 2.6% [Concomitant]
     Dosage: UNK
     Route: 065
     Dates: start: 19810101
  2. SIMVASTATIN [Concomitant]
     Dosage: UNK
     Route: 065
     Dates: start: 20070101
  3. OMEPRAZOLE [Concomitant]
     Dosage: UNK
     Route: 065
     Dates: start: 19810101
  4. INFLUENZA SPLIT TRITON VACCINE [Concomitant]
     Indication: DRUG USE FOR UNKNOWN INDICATION
     Dosage: UNK
     Route: 023
     Dates: start: 20071025
  5. ZOLPIDEM TARTRATE [Suspect]
     Indication: INSOMNIA
     Route: 048
     Dates: start: 20071104, end: 20071104
  6. CARDIO ASPERINE [Concomitant]
     Dosage: UNK
     Route: 065
     Dates: start: 19810101
  7. EMCONCOR MITIS [Concomitant]
     Dosage: UNK
     Route: 065
     Dates: start: 20040101

REACTIONS (3)
  - FALL [None]
  - SOMNOLENCE [None]
  - WRIST FRACTURE [None]
